FAERS Safety Report 18315543 (Version 1)
Quarter: 2020Q3

REPORT INFORMATION
  Report Type: Spontaneous
  Country: US (occurrence: US)
  Receive Date: 20200926
  Receipt Date: 20200926
  Transmission Date: 20201103
  Serious: No
  Sender: FDA-Public Use
  Company Number: US-TEVA-2020-US-1831896

PATIENT
  Age: 17 Year
  Sex: Male

DRUGS (1)
  1. ATOMOXETINE. [Suspect]
     Active Substance: ATOMOXETINE HYDROCHLORIDE
     Indication: ATTENTION DEFICIT HYPERACTIVITY DISORDER
     Route: 065
     Dates: start: 20200918

REACTIONS (7)
  - Heart rate abnormal [Unknown]
  - Feeling abnormal [Unknown]
  - Tremor [Unknown]
  - Hyperhidrosis [Unknown]
  - Palpitations [Unknown]
  - Tachycardia [Unknown]
  - Formication [Unknown]

NARRATIVE: CASE EVENT DATE: 20200918
